FAERS Safety Report 15167197 (Version 3)
Quarter: 2018Q3

REPORT INFORMATION
  Report Type: Report from Study
  Country: US (occurrence: US)
  Receive Date: 20180719
  Receipt Date: 20180830
  Transmission Date: 20181010
  Serious: Yes (Hospitalization)
  Sender: FDA-Public Use
  Company Number: US-PUMA BIOTECHNOLOGY, LTD.-2018US006772

PATIENT

DRUGS (4)
  1. NERLYNX [Suspect]
     Active Substance: NERATINIB
     Dosage: 160 MG(4 TABLETS), DAILY
     Route: 048
     Dates: start: 20180812
  2. NERLYNX [Suspect]
     Active Substance: NERATINIB
     Dosage: 200 MG, DAILY
     Route: 048
     Dates: start: 20180719
  3. NERLYNX [Suspect]
     Active Substance: NERATINIB
     Indication: BREAST CANCER FEMALE
     Dosage: 240 MG, DAILY
     Route: 048
     Dates: start: 20180621, end: 20180627
  4. NERLYNX [Suspect]
     Active Substance: NERATINIB
     Dosage: 160 MG, DAILY
     Route: 048
     Dates: start: 20180705, end: 20180718

REACTIONS (17)
  - Dehydration [Recovered/Resolved]
  - Nausea [Recovered/Resolved]
  - Somnolence [Unknown]
  - Fatigue [Unknown]
  - Dry mouth [Unknown]
  - Heart rate decreased [Unknown]
  - Acute kidney injury [Recovered/Resolved]
  - Vomiting [Not Recovered/Not Resolved]
  - Dry skin [Unknown]
  - Blood pressure decreased [Unknown]
  - Dysphemia [Unknown]
  - Decreased appetite [Not Recovered/Not Resolved]
  - Weight decreased [Unknown]
  - Muscle twitching [Unknown]
  - Dyspepsia [Recovered/Resolved]
  - Dizziness [Unknown]
  - Diarrhoea [Not Recovered/Not Resolved]

NARRATIVE: CASE EVENT DATE: 2018
